FAERS Safety Report 4918059-1 (Version None)
Quarter: 2006Q1

REPORT INFORMATION
  Report Type: 
  Country: None (occurrence: None)
  Receive Date: 20060221
  Receipt Date: 20060210
  Transmission Date: 20060701
  Serious: Yes (Life-Threatening)
  Sender: FDA-Public Use
  Company Number: JP-MERCK-0602USA04315

PATIENT
  Age: 51 Year
  Sex: Female

DRUGS (3)
  1. TIMOPTIC [Suspect]
     Indication: GLAUCOMA
     Route: 047
     Dates: start: 20060110, end: 20060210
  2. XALATAN [Concomitant]
     Indication: GLAUCOMA
     Route: 047
     Dates: start: 20060110, end: 20060210
  3. VITAMINS (UNSPECIFIED) [Concomitant]
     Route: 048

REACTIONS (2)
  - BLOOD CREATININE INCREASED [None]
  - BLOOD POTASSIUM INCREASED [None]
